FAERS Safety Report 5114202-2 (Version None)
Quarter: 2006Q3

REPORT INFORMATION
  Report Type: 
  Country: None (occurrence: None)
  Receive Date: 20060925
  Receipt Date: 20060918
  Transmission Date: 20061208
  Serious: Yes (Other)
  Sender: FDA-Public Use
  Company Number: US-SANOFI-SYNTHELABO-A03200605755

PATIENT
  Sex: Male

DRUGS (1)
  1. AMBIEN [Suspect]
     Indication: INSOMNIA
     Dosage: A 1/2 OF A 1/2 OF A 1/2 DF
     Route: 048
     Dates: start: 20060101, end: 20060913

REACTIONS (5)
  - FALL [None]
  - PAIN [None]
  - SLEEP WALKING [None]
  - SPINAL FRACTURE [None]
  - THERAPEUTIC RESPONSE INCREASED [None]
